FAERS Safety Report 7293339-6 (Version None)
Quarter: 2011Q1

REPORT INFORMATION
  Report Type: 
  Country: None (occurrence: None)
  Receive Date: 20110215
  Receipt Date: 20110202
  Transmission Date: 20110831
  Serious: Yes (Other)
  Sender: FDA-Public Use
  Company Number: IT-WATSON-2011-01450

PATIENT
  Age: 76 Year
  Sex: Male

DRUGS (2)
  1. FLUOROURACIL [Suspect]
     Indication: COLON CANCER
     Dosage: UNK
     Dates: start: 20070601
  2. LEUCOVORIN                         /00566701/ [Suspect]
     Indication: COLON CANCER
     Dosage: UNK
     Dates: start: 20070601

REACTIONS (2)
  - VASCULITIS [None]
  - PALMAR-PLANTAR ERYTHRODYSAESTHESIA SYNDROME [None]
